FAERS Safety Report 16768256 (Version 2)
Quarter: 2019Q3

REPORT INFORMATION
  Report Type: Spontaneous
  Country: DE (occurrence: DE)
  Receive Date: 20190903
  Receipt Date: 20190903
  Transmission Date: 20191005
  Serious: Yes (Other)
  Sender: FDA-Public Use
  Company Number: PHHY2019DE200654

PATIENT
  Age: 31 Year
  Sex: Female
  Weight: 65 kg

DRUGS (4)
  1. CERVIDIL [Concomitant]
     Active Substance: DINOPROSTONE
     Indication: LABOUR INDUCTION
     Dosage: 2 TRIMESTER (17.3. - 17.3. GESTATIONAL WEEK)
     Route: 067
  2. THYRONAJOD [Concomitant]
     Active Substance: LEVOTHYROXINE SODIUM\POTASSIUM IODIDE
     Indication: HYPOTHYROIDISM
     Dosage: 75 UG, QD (0. - 17.3. GESTATIONAL WEEK) (1 TRIMESTER)
     Route: 048
  3. LETROZOLE. [Suspect]
     Active Substance: LETROZOLE
     Indication: ASSISTED FERTILISATION
     Route: 048
  4. METFORMIN [Suspect]
     Active Substance: METFORMIN HYDROCHLORIDE
     Indication: POLYCYSTIC OVARIES
     Dosage: 4000 MG, QD (2X2000MG DAILY DURING THE FIRST TRIMESTER, FROM WEEK 13 1000MG /D) (0. - 17.3. GESTATI)
     Route: 048

REACTIONS (2)
  - Abortion spontaneous [Unknown]
  - Exposure during pregnancy [Unknown]
